FAERS Safety Report 7834727-6 (Version None)
Quarter: 2011Q4

REPORT INFORMATION
  Report Type: 
  Country: None (occurrence: None)
  Receive Date: 20111020
  Receipt Date: 20111006
  Transmission Date: 20120403
  Serious: Yes (Hospitalization, Other)
  Sender: FDA-Public Use
  Company Number: 2011MA014825

PATIENT
  Age: 27 Year
  Sex: Female

DRUGS (7)
  1. CLOZARIL [Suspect]
     Indication: SCHIZOPHRENIA
     Dates: start: 20100106, end: 20110601
  2. LANSOPRAZOLE [Concomitant]
  3. METFORMIN HYDROCHLORIDE [Suspect]
     Indication: PRODUCT USED FOR UNKNOWN INDICATION
     Dates: start: 20110409
  4. FLUOXETINE HCL [Concomitant]
  5. DIAZEPAM [Suspect]
     Indication: PRODUCT USED FOR UNKNOWN INDICATION
     Dates: start: 20110409
  6. VALPROIC ACID [Concomitant]
  7. TRIHEXYPHENIDYL HCL [Concomitant]

REACTIONS (5)
  - NEUTROPENIA [None]
  - SUICIDE ATTEMPT [None]
  - WEIGHT INCREASED [None]
  - MULTIPLE DRUG OVERDOSE INTENTIONAL [None]
  - AFFECTIVE DISORDER [None]
